FAERS Safety Report 20358618 (Version 1)
Quarter: 2022Q1

REPORT INFORMATION
  Report Type: Report from Study
  Country: ES (occurrence: ES)
  Receive Date: 20220120
  Receipt Date: 20220120
  Transmission Date: 20220423
  Serious: Yes (Other)
  Sender: FDA-Public Use
  Company Number: ES-BoehringerIngelheim-2022-BI-107238

PATIENT

DRUGS (3)
  1. AFATINIB [Suspect]
     Active Substance: AFATINIB
     Indication: EGFR gene mutation
  2. AFATINIB [Suspect]
     Active Substance: AFATINIB
     Indication: Non-small cell lung cancer metastatic
  3. CYCLOPHOSPHAMIDE [Concomitant]
     Active Substance: CYCLOPHOSPHAMIDE
     Indication: Product used for unknown indication
     Dosage: IT WAS A SINGLE INTRAVENOUS DOSE OF 200 MG/M2.
     Route: 042

REACTIONS (2)
  - Lipase increased [Unknown]
  - Amylase increased [Unknown]
